FAERS Safety Report 18061638 (Version 2)
Quarter: 2020Q3

REPORT INFORMATION
  Report Type: Spontaneous
  Country: US (occurrence: US)
  Receive Date: 20200723
  Receipt Date: 20200820
  Transmission Date: 20201103
  Serious: Yes (Hospitalization)
  Sender: FDA-Public Use
  Company Number: US-KASDIRECT-2020-US-013854

PATIENT
  Age: 3 Month
  Sex: Female

DRUGS (1)
  1. BABYGANICS SUNSCREEN 50 SPF [Suspect]
     Active Substance: OCTINOXATE\OCTISALATE\ZINC OXIDE
     Indication: THERAPEUTIC SKIN CARE TOPICAL
     Dosage: APPLIED TO BABY TWO DAYS IN A ROW
     Route: 061
     Dates: start: 20200612, end: 20200613

REACTIONS (2)
  - Epilepsy [Not Recovered/Not Resolved]
  - Seizure [Unknown]

NARRATIVE: CASE EVENT DATE: 202006
